FAERS Safety Report 5026529-3 (Version None)
Quarter: 2006Q2

REPORT INFORMATION
  Report Type: 
  Country: None (occurrence: None)
  Receive Date: 20060428
  Receipt Date: 20060323
  Transmission Date: 20061013
  Serious: Yes (Hospitalization)
  Sender: FDA-Public Use
  Company Number: WAES 0603USA03929

PATIENT
  Age: 42 Year
  Sex: Male

DRUGS (5)
  1. EMEND [Suspect]
     Dosage: 125 MG/1X/PO;  80 MG/DAILY/PO
     Route: 048
  2. EMEND [Suspect]
     Dosage: 125 MG/1X/PO;  80 MG/DAILY/PO
     Route: 048
  3. COMPAZINE [Concomitant]
  4. ZOFRAN [Concomitant]
  5. PREDNISONE TAB [Concomitant]

REACTIONS (2)
  - NAUSEA [None]
  - VOMITING [None]
